FAERS Safety Report 16918323 (Version 5)
Quarter: 2019Q4

REPORT INFORMATION
  Report Type: Spontaneous
  Country: JP (occurrence: JP)
  Receive Date: 20191015
  Receipt Date: 20191205
  Transmission Date: 20200122
  Serious: Yes (Other)
  Sender: FDA-Public Use
  Company Number: JP-PFIZER INC-2019432652

PATIENT
  Age: 93 Year
  Sex: Female

DRUGS (3)
  1. ALDACTONE A [Suspect]
     Active Substance: SPIRONOLACTONE
     Dosage: UNK
     Route: 065
  2. FEBURIC [Suspect]
     Active Substance: FEBUXOSTAT
     Dosage: UNK
  3. ELIQUIS [Suspect]
     Active Substance: APIXABAN
     Dosage: UNK
     Route: 065

REACTIONS (6)
  - Abdominal pain upper [Recovered/Resolved]
  - Nausea [Unknown]
  - Myalgia [Recovered/Resolved]
  - Abdominal pain [Unknown]
  - Musculoskeletal stiffness [Unknown]
  - Decreased appetite [Unknown]
